FAERS Safety Report 7809019-1 (Version None)
Quarter: 2011Q4

REPORT INFORMATION
  Report Type: 
  Country: None (occurrence: None)
  Receive Date: 20111012
  Receipt Date: 20111012
  Transmission Date: 20120403
  Serious: Yes (Life-Threatening)
  Sender: FDA-Public Use
  Company Number: None

PATIENT
  Age: 53 Year
  Sex: Female
  Weight: 113.39 kg

DRUGS (1)
  1. PRISTIQ [Suspect]
     Indication: MAJOR DEPRESSION
     Dosage: 50MG
     Route: 048
     Dates: start: 20110725, end: 20110812

REACTIONS (9)
  - HOT FLUSH [None]
  - DIARRHOEA [None]
  - FALL [None]
  - PRURITUS [None]
  - ABDOMINAL PAIN [None]
  - BURNING SENSATION [None]
  - SEROTONIN SYNDROME [None]
  - DYSPNOEA [None]
  - ASTHENIA [None]
